FAERS Safety Report 8360628-3 (Version None)
Quarter: 2012Q2

REPORT INFORMATION
  Report Type: 
  Country: None (occurrence: None)
  Receive Date: 20120515
  Receipt Date: 20120501
  Transmission Date: 20120825
  Serious: No
  Sender: FDA-Public Use
  Company Number: US-BAYER-2012-046613

PATIENT

DRUGS (3)
  1. ALEVE (CAPLET) [Suspect]
     Indication: OROPHARYNGEAL PAIN
     Route: 048
  2. RICOLA [Concomitant]
  3. COUGH DROPS [Concomitant]

REACTIONS (1)
  - OROPHARYNGEAL PAIN [None]
